FAERS Safety Report 15786113 (Version 3)
Quarter: 2019Q1

REPORT INFORMATION
  Report Type: Spontaneous
  Country: CH (occurrence: CH)
  Receive Date: 20190103
  Receipt Date: 20190110
  Transmission Date: 20190417
  Serious: Yes (Hospitalization)
  Sender: FDA-Public Use
  Company Number: CH-PFIZER INC-2018535104

PATIENT
  Age: 75 Year
  Sex: Male
  Weight: 69 kg

DRUGS (9)
  1. TOVIAZ [Concomitant]
     Active Substance: FESOTERODINE FUMARATE
     Dosage: 4 MG, 1X/DAY
     Route: 048
  2. SINTROM [Suspect]
     Active Substance: ACENOCOUMAROL
     Indication: ATRIAL FIBRILLATION
     Dosage: 1 MG, THERAPY ACCORDING TO MEDICAL SCHEME. UNKNOWN SINCE WHEN THE PATIENT HAS BEEN TAKING THE DRUG.
     Route: 048
     Dates: end: 20181016
  3. VOTUM [OLMESARTAN MEDOXOMIL] [Concomitant]
     Dosage: 20 MG, 1X/DAY
     Route: 048
     Dates: end: 20181004
  4. FORSTEO [Concomitant]
     Active Substance: TERIPARATIDE
     Dosage: 0.08 UG, 1X/DAY
     Route: 058
  5. PREGABALIN PFIZER [Concomitant]
     Active Substance: PREGABALIN
     Dosage: 75 MG, 1X/DAY
     Route: 048
  6. ATORVASTATIN PFIZER [Suspect]
     Active Substance: ATORVASTATIN
     Dosage: 40 MG, 1X/DAY; UNKNOWN SINCE WHEN THE PATIENT HAS BEEN TAKING THE DRUG
     Route: 048
  7. CORDARONE [Interacting]
     Active Substance: AMIODARONE HYDROCHLORIDE
     Indication: ATRIAL FIBRILLATION
     Dosage: 200 MG, 1X/DAY; UNKNOWN SINCE WHEN THE PATIENT HAS BEEN TAKING THE DRUG
     Route: 048
  8. DAFALGAN [Concomitant]
     Active Substance: ACETAMINOPHEN
     Dosage: 1 G, 1X/DAY
     Route: 048
  9. LIORESAL [Concomitant]
     Active Substance: BACLOFEN
     Dosage: 10 MG, 2X/DAY
     Route: 048

REACTIONS (5)
  - Oropharyngeal pain [Unknown]
  - Fall [Unknown]
  - Subdural haematoma [Recovering/Resolving]
  - Drug interaction [Recovered/Resolved]
  - Hyperpyrexia [Unknown]

NARRATIVE: CASE EVENT DATE: 20181009
